FAERS Safety Report 8552441-9 (Version None)
Quarter: 2012Q3

REPORT INFORMATION
  Report Type: 
  Country: None (occurrence: None)
  Receive Date: 20120731
  Receipt Date: 20120723
  Transmission Date: 20120928
  Serious: Yes (Life-Threatening)
  Sender: FDA-Public Use
  Company Number: TR-JNJFOC-20120711253

PATIENT
  Sex: Male

DRUGS (3)
  1. ALPRAZOLAM [Concomitant]
     Route: 065
     Dates: start: 20120708, end: 20120710
  2. PALIPERIDONE PALMITATE [Suspect]
     Indication: SCHIZOPHRENIA
     Route: 030
     Dates: start: 20120323
  3. ALPRAZOLAM [Concomitant]
     Indication: RESTLESSNESS
     Route: 065
     Dates: start: 20120701, end: 20120703

REACTIONS (1)
  - SUICIDE ATTEMPT [None]
